FAERS Safety Report 24543061 (Version 2)
Quarter: 2024Q4

REPORT INFORMATION
  Report Type: Report from Study
  Country: CH (occurrence: CH)
  Receive Date: 20241024
  Receipt Date: 20241223
  Transmission Date: 20250114
  Serious: Yes (Other)
  Sender: BOEHRINGER INGELHEIM
  Company Number: CH-BoehringerIngelheim-2021-BI-133312

PATIENT
  Age: 62 Year
  Sex: Male
  Weight: 102 kg

DRUGS (6)
  1. OFEV [Suspect]
     Active Substance: NINTEDANIB
     Indication: Idiopathic pulmonary fibrosis
     Route: 048
     Dates: start: 20220701
  2. OFEV [Suspect]
     Active Substance: NINTEDANIB
     Route: 048
     Dates: start: 20211013, end: 20220512
  3. OFEV [Suspect]
     Active Substance: NINTEDANIB
     Dosage: DAILY DOSE TOTAL 250MG DIVIDED INTO: 1X 100MG AND 1X150MG
     Route: 048
     Dates: start: 20240403
  4. OFEV [Suspect]
     Active Substance: NINTEDANIB
     Dosage: DAILY DOSE TOTAL 250MG DIVIDED INTO: 1X 100MG AND 1X150MG
     Route: 048
     Dates: start: 20240403
  5. OFEV [Suspect]
     Active Substance: NINTEDANIB
     Route: 048
     Dates: start: 202410
  6. Janumet 1000/50 [Concomitant]
     Indication: Type 2 diabetes mellitus
     Dosage: (1000/50)
     Route: 048

REACTIONS (20)
  - Idiopathic pulmonary fibrosis [Not Recovered/Not Resolved]
  - Nervousness [Recovered/Resolved]
  - Influenza [Recovered/Resolved]
  - Nervousness [Recovered/Resolved]
  - Gingivitis [Recovered/Resolved]
  - Weight decreased [Recovered/Resolved]
  - Abdominal pain [Recovered/Resolved]
  - Diarrhoea [Recovered/Resolved]
  - Decreased appetite [Recovered/Resolved]
  - Gastritis [Recovered/Resolved]
  - Epistaxis [Recovered/Resolved]
  - Blood glucose increased [Recovered/Resolved]
  - Cough [Recovered/Resolved]
  - Disease progression [Unknown]
  - Epistaxis [Recovered/Resolved]
  - Fatigue [Not Recovered/Not Resolved]
  - Cough [Recovered/Resolved]
  - Fatigue [Recovered/Resolved]
  - Mouth haemorrhage [Recovered/Resolved]
  - Fatigue [Recovered/Resolved]

NARRATIVE: CASE EVENT DATE: 20211015
